FAERS Safety Report 9788898 (Version 1)
Quarter: 2013Q4

REPORT INFORMATION
  Report Type: Spontaneous
  Country: JP (occurrence: JP)
  Receive Date: 20131230
  Receipt Date: 20131230
  Transmission Date: 20140711
  Serious: Yes (Other)
  Sender: FDA-Public Use
  Company Number: JP-GLAXOSMITHKLINE-B0955566A

PATIENT
  Age: 54 Year
  Sex: Female

DRUGS (5)
  1. ALKERAN [Suspect]
     Indication: STEM CELL TRANSPLANT
     Route: 042
  2. FLUDARABINE PHOSPHATE [Concomitant]
     Indication: STEM CELL TRANSPLANT
  3. METHOTREXATE [Concomitant]
     Indication: PROPHYLAXIS AGAINST GRAFT VERSUS HOST DISEASE
  4. BUSULFAN [Concomitant]
     Indication: STEM CELL TRANSPLANT
  5. TACROLIMUS HYDRATE [Concomitant]
     Indication: PROPHYLAXIS AGAINST GRAFT VERSUS HOST DISEASE

REACTIONS (6)
  - Acute graft versus host disease [Unknown]
  - Subarachnoid haemorrhage [Unknown]
  - CSF protein increased [Unknown]
  - CSF cell count increased [Unknown]
  - Viral infection [Unknown]
  - Myelitis transverse [Unknown]
